FAERS Safety Report 5523946-X (Version None)
Quarter: 2007Q4

REPORT INFORMATION
  Report Type: 
  Country: None (occurrence: None)
  Receive Date: 20071121
  Receipt Date: 20071113
  Transmission Date: 20080405
  Serious: Yes (Hospitalization, Other)
  Sender: FDA-Public Use
  Company Number: CH-ABBOTT-07P-151-0424556-00

PATIENT
  Age: 40 Year

DRUGS (4)
  1. LOPINAVIR AND RITONAVIR [Suspect]
     Indication: HIV INFECTION
     Dosage: NOT REPORTED
  2. AZT [Suspect]
     Indication: HIV INFECTION
     Dosage: NOT REPORTED
  3. 3TC [Suspect]
     Indication: HIV INFECTION
     Dosage: NOT REPORTED
  4. SULFAMETHOXAZOLE + TRIMETHOPRIM [Concomitant]
     Indication: PROPHYLAXIS
     Dosage: NOT REPORTED

REACTIONS (1)
  - CYTOMEGALOVIRUS COLITIS [None]
